FAERS Safety Report 6554392-8 (Version None)
Quarter: 2010Q1

REPORT INFORMATION
  Report Type: 
  Country: None (occurrence: None)
  Receive Date: 20100125
  Receipt Date: 20100125
  Transmission Date: 20100710
  Serious: Yes (Hospitalization)
  Sender: FDA-Public Use
  Company Number: None

PATIENT
  Sex: Male

DRUGS (2)
  1. CETUXIMAB 250 MG/M2 [Suspect]
     Indication: URETHRAL CANCER METASTATIC
     Dosage: 525 MG IV
     Route: 042
  2. PACLITAXEL 70 MG/M2 [Suspect]
     Indication: BLADDER CANCER
     Dosage: 147MG IV
     Route: 042

REACTIONS (4)
  - ANAEMIA [None]
  - RENAL FAILURE CHRONIC [None]
  - URINARY TRACT INFECTION FUNGAL [None]
  - UROSEPSIS [None]
